FAERS Safety Report 5154928-8 (Version None)
Quarter: 2006Q4

REPORT INFORMATION
  Report Type: 
  Country: None (occurrence: None)
  Receive Date: 20061121
  Receipt Date: 20061108
  Transmission Date: 20070319
  Serious: Yes (Other)
  Sender: FDA-Public Use
  Company Number: PHEH2006US13855

PATIENT
  Age: 76 Year
  Sex: Male

DRUGS (1)
  1. LESCOL XL [Suspect]
     Indication: BLOOD CHOLESTEROL INCREASED
     Dosage: 80 MG, QD
     Dates: start: 20010101

REACTIONS (2)
  - CARDIAC PACEMAKER INSERTION [None]
  - HEART RATE IRREGULAR [None]
